FAERS Safety Report 9852212 (Version 2)
Quarter: 2014Q2

REPORT INFORMATION
  Report Type: Spontaneous
  Country: US (occurrence: None)
  Receive Date: 20140127
  Receipt Date: 20140513
  Transmission Date: 20141212
  Serious: Yes (Other)
  Sender: FDA-Public Use
  Company Number: 2014-US-000447

PATIENT
  Age: 37 Year
  Sex: Female

DRUGS (13)
  1. XYREM (SODIUM OXYBATE) (ORAL SOLUTION, 500MG/ML) [Suspect]
     Indication: NARCOLEPSY
     Route: 048
     Dates: start: 201012
  2. XYREM (SODIUM OXYBATE) (ORAL SOLUTION, 500MG/ML) [Suspect]
     Indication: CATAPLEXY
     Route: 048
     Dates: start: 201012
  3. NORCO (HYDROCODONE BITARTRATE, PARACETAMOL) [Concomitant]
  4. FLONASE (FLUTICASONE PROPIONATE) [Concomitant]
  5. ADDERALL (AMFETAMINE ASPARTATE, AMFETAMINE SULFATE, DEXAMFETAMINE SACCHARATE, DEXAMFETAMINE SULFATE) [Concomitant]
  6. SAPHRIS (ASENAPINE MALEATE) [Concomitant]
  7. COGENTIN (BENZATROPINE MESILATE) [Concomitant]
  8. ZYRTEC ALLERGY (CETIRIZINE HYDROCHLORIDE) [Concomitant]
  9. DURAGESIC (FENTANYL) [Concomitant]
  10. LISINOPRIL AND HYRDOCHLOROTHIAZIDE (HYDROCHLOROTHIAZIDE, LISINOPRIL) [Concomitant]
  11. WELLBUTRIN (BUPROPION HYDROCHLORIDE) [Concomitant]
  12. CYMBALTA [Concomitant]
  13. FLAGYL (METRONIDAZOLE BENZOATE) [Concomitant]

REACTIONS (1)
  - Bipolar disorder [None]
